FAERS Safety Report 5630402-7 (Version None)
Quarter: 2008Q1

REPORT INFORMATION
  Report Type: 
  Country: None (occurrence: None)
  Receive Date: 20080219
  Receipt Date: 20080208
  Transmission Date: 20080703
  Serious: Yes (Death, Hospitalization, Other)
  Sender: FDA-Public Use
  Company Number: PHEH2008US01756

PATIENT
  Sex: Female

DRUGS (1)
  1. ELIDEL [Suspect]
     Indication: ECZEMA
     Dosage: UNK, UNK
     Route: 061
     Dates: start: 20021206, end: 20051212

REACTIONS (4)
  - ACUTE LEUKAEMIA [None]
  - ACUTE MYELOID LEUKAEMIA [None]
  - CONTUSION [None]
  - PALLOR [None]
